FAERS Safety Report 21619876 (Version 4)
Quarter: 2023Q4

REPORT INFORMATION
  Report Type: Spontaneous
  Country: US (occurrence: US)
  Receive Date: 20221121
  Receipt Date: 20231128
  Transmission Date: 20240110
  Serious: No
  Sender: FDA-Public Use
  Company Number: US-GSK-US2022169243

PATIENT
  Age: 29 Year
  Sex: Female
  Weight: 99.79 kg

DRUGS (1)
  1. BELIMUMAB [Suspect]
     Active Substance: BELIMUMAB
     Indication: Systemic lupus erythematosus
     Dosage: UNK, WE, 4 IN TRAY
     Dates: end: 20221028

REACTIONS (5)
  - Pain [Unknown]
  - Fatigue [Unknown]
  - Ill-defined disorder [Unknown]
  - Chest pain [Unknown]
  - Product dose omission issue [Not Recovered/Not Resolved]

NARRATIVE: CASE EVENT DATE: 20221028
